FAERS Safety Report 4941967-2 (Version None)
Quarter: 2006Q1

REPORT INFORMATION
  Report Type: 
  Country: None (occurrence: None)
  Receive Date: 20060308
  Receipt Date: 20060221
  Transmission Date: 20060701
  Serious: Yes (Other)
  Sender: FDA-Public Use
  Company Number: 2006-138950-NL

PATIENT
  Sex: Female

DRUGS (1)
  1. NUVARING [Suspect]
     Indication: CONTRACEPTION
     Dates: end: 20060220

REACTIONS (1)
  - CONTRACEPTIVE DEVICE COMPLICATION [None]
